FAERS Safety Report 8244647-3 (Version None)
Quarter: 2012Q1

REPORT INFORMATION
  Report Type: 
  Country: None (occurrence: None)
  Receive Date: 20120329
  Receipt Date: 20111129
  Transmission Date: 20120608
  Serious: No
  Sender: FDA-Public Use
  Company Number: US-MYLANLABS-2011S1024848

PATIENT
  Sex: Female

DRUGS (2)
  1. ZOLOFT [Concomitant]
     Indication: DEPRESSION
  2. FENTANYL-100 [Suspect]
     Indication: BONE PAIN
     Dosage: CHANGED Q72H
     Route: 062
     Dates: start: 20110901, end: 20111121

REACTIONS (3)
  - HALLUCINATION [None]
  - CONDITION AGGRAVATED [None]
  - AMNESIA [None]
